FAERS Safety Report 6309093-8 (Version None)
Quarter: 2009Q3

REPORT INFORMATION
  Report Type: 
  Country: None (occurrence: None)
  Receive Date: 20090814
  Receipt Date: 20090810
  Transmission Date: 20100115
  Serious: Yes (Other)
  Sender: FDA-Public Use
  Company Number: US-TEVA-205458USA

PATIENT
  Age: 70 Year
  Sex: Male

DRUGS (7)
  1. PRAVASTATIN ,TABLETS 40 MG [Suspect]
     Indication: HYPERLIPIDAEMIA
     Route: 048
  2. SIMVASTATIN [Suspect]
     Indication: HYPERLIPIDAEMIA
     Route: 048
  3. FLUVASTATIN [Suspect]
     Indication: HYPERLIPIDAEMIA
  4. ROSUVASTATIN CALCIUM [Suspect]
     Indication: HYPERLIPIDAEMIA
  5. ATORVASTATIN [Suspect]
  6. CERIVASTATIN [Suspect]
  7. EZETIMIBE [Suspect]

REACTIONS (1)
  - AMYOTROPHIC LATERAL SCLEROSIS [None]
